FAERS Safety Report 9361157 (Version 1)
Quarter: 2013Q2

REPORT INFORMATION
  Report Type: Spontaneous
  Country: US (occurrence: US)
  Receive Date: 20130621
  Receipt Date: 20130621
  Transmission Date: 20140414
  Serious: Yes (Other)
  Sender: FDA-Public Use
  Company Number: US-TARO PHARMACEUTICALS U.S.A., INC-2013SUN00815

PATIENT
  Age: 91 Year
  Sex: Female

DRUGS (2)
  1. IMIQUIMOD [Suspect]
     Indication: BASAL CELL CARCINOMA
     Dosage: MORE FREQUENTLY THAN THRICE WEEKLY
     Route: 061
  2. IMIQUIMOD [Suspect]
     Dosage: UNK

REACTIONS (8)
  - Delirium [Recovered/Resolved]
  - Cognitive disorder [Not Recovered/Not Resolved]
  - Dementia [Unknown]
  - Overdose [None]
  - Disturbance in attention [Unknown]
  - Skin reaction [Unknown]
  - Insomnia [Unknown]
  - Agitation [Unknown]
